FAERS Safety Report 9836731 (Version 4)
Quarter: 2014Q2

REPORT INFORMATION
  Report Type: Spontaneous
  Country: GB (occurrence: GB)
  Receive Date: 20140123
  Receipt Date: 20140607
  Transmission Date: 20141212
  Serious: Yes (Other)
  Sender: FDA-Public Use
  Company Number: PHHY2014GB003465

PATIENT
  Age: 69 Year
  Sex: Female

DRUGS (9)
  1. SIMVASTATIN [Suspect]
     Indication: HYPERCHOLESTEROLAEMIA
     Dosage: 20 MG, DAILY IN THE MORNING
     Dates: start: 20120601, end: 201209
  2. SIMVASTATIN [Suspect]
     Dosage: 10 MG DAILY, IN THE MORNING
     Dates: start: 201209, end: 201311
  3. SIMVASTATIN [Suspect]
     Dosage: IN THE MORNING
     Dates: start: 201209, end: 201311
  4. SIMVASTATIN [Suspect]
     Dosage: IN THE MORNING
     Dates: start: 20120601, end: 201209
  5. GARLIC [Concomitant]
  6. GARLIC [Concomitant]
     Dosage: OCCASIONALLY
  7. COD LIVER OIL [Concomitant]
  8. COD LIVER OIL [Concomitant]
     Dosage: OCCASIONALLY
  9. MULTIVITAMIN [Concomitant]

REACTIONS (4)
  - Muscle atrophy [Not Recovered/Not Resolved]
  - Alopecia [Not Recovered/Not Resolved]
  - Breast atrophy [Not Recovered/Not Resolved]
  - Weight decreased [Not Recovered/Not Resolved]
